FAERS Safety Report 14098661 (Version 1)
Quarter: 2017Q4

REPORT INFORMATION
  Report Type: Spontaneous
  Country: US (occurrence: US)
  Receive Date: 20171017
  Receipt Date: 20171017
  Transmission Date: 20180321
  Serious: Yes (Other)
  Sender: FDA-Public Use
  Company Number: US-INCYTE CORPORATION-2017IN008720

PATIENT

DRUGS (2)
  1. ASPIRIN                            /00002701/ [Concomitant]
     Active Substance: ASPIRIN
     Indication: PRODUCT USED FOR UNKNOWN INDICATION
  2. JAKAFI [Suspect]
     Active Substance: RUXOLITINIB
     Indication: SPLENOMEGALY
     Dosage: 20 MG, BID
     Route: 048

REACTIONS (4)
  - Blood disorder [Unknown]
  - Haemorrhage [Unknown]
  - Off label use [Unknown]
  - Skin papilloma [Unknown]
